FAERS Safety Report 7680948-5 (Version None)
Quarter: 2011Q3

REPORT INFORMATION
  Report Type: 
  Country: None (occurrence: None)
  Receive Date: 20110809
  Receipt Date: 20110526
  Transmission Date: 20111222
  Serious: No
  Sender: FDA-Public Use
  Company Number: 2011-009

PATIENT
  Age: 83 Year
  Sex: Female

DRUGS (3)
  1. ACETYLSALIC ACID [Concomitant]
  2. FLUTICASONE PROPIONATE [Suspect]
  3. ALLEGRA [Concomitant]

REACTIONS (1)
  - EPISTAXIS [None]
